FAERS Safety Report 8162539-5 (Version None)
Quarter: 2012Q1

REPORT INFORMATION
  Report Type: 
  Country: None (occurrence: None)
  Receive Date: 20120224
  Receipt Date: 20110526
  Transmission Date: 20120608
  Serious: No
  Sender: FDA-Public Use
  Company Number: US-PFIZER INC-K201100654

PATIENT
  Age: 92 Year
  Sex: Female

DRUGS (4)
  1. ALTACE [Suspect]
     Indication: CARDIOMEGALY
     Dosage: 10 MG, 1X/DAY
     Route: 048
     Dates: start: 19960101, end: 20110501
  2. ALTACE [Suspect]
     Dosage: 10 MG, 1X/DAY
     Route: 048
     Dates: start: 20110501
  3. VITAMIN D [Concomitant]
     Dosage: UNK
  4. ASCORBIC ACID [Concomitant]
     Dosage: UNK

REACTIONS (3)
  - CHEST DISCOMFORT [None]
  - HEART RATE INCREASED [None]
  - PALPITATIONS [None]
